FAERS Safety Report 4810933-X (Version None)
Quarter: 2005Q4

REPORT INFORMATION
  Report Type: 
  Country: None (occurrence: None)
  Receive Date: 20051025
  Receipt Date: 20051013
  Transmission Date: 20060501
  Serious: Yes (Other)
  Sender: FDA-Public Use
  Company Number: 2005133925

PATIENT
  Sex: Female

DRUGS (7)
  1. CELEBREX [Suspect]
     Indication: ARTHRITIS
  2. BEXTRA [Suspect]
     Indication: ARTHRITIS
     Dosage: 20 MG (1 IN 1 D),
  3. ASPIRIN [Suspect]
     Indication: ARTHRITIS
  4. FLURBIPROFEN [Suspect]
     Indication: ARTHRITIS
  5. IBUPROFEN [Suspect]
     Indication: ARTHRITIS
  6. NAPROXEN [Suspect]
     Indication: ARTHRITIS
  7. MOBIC [Concomitant]

REACTIONS (2)
  - COLITIS COLLAGENOUS [None]
  - DRUG INEFFECTIVE [None]
